FAERS Safety Report 6191193-7 (Version None)
Quarter: 2009Q2

REPORT INFORMATION
  Report Type: 
  Country: None (occurrence: None)
  Receive Date: 20090513
  Receipt Date: 20090513
  Transmission Date: 20091009
  Serious: Yes (Other)
  Sender: FDA-Public Use
  Company Number: None

PATIENT
  Sex: Male
  Weight: 63.7757 kg

DRUGS (11)
  1. LEVETIRACETAM [Suspect]
     Indication: COMPLEX PARTIAL SEIZURES
     Dosage: 3750 MG DAILY PO
     Route: 048
     Dates: start: 20090121
  2. LAMOTRIGINE [Suspect]
     Indication: COMPLEX PARTIAL SEIZURES
     Dosage: 400 MG DAILY
     Dates: start: 20090121
  3. ARICEPT [Concomitant]
  4. HYDROCHLOROTHIAZIDE [Concomitant]
  5. LEVOXYL [Concomitant]
  6. LISINOPRIL [Concomitant]
  7. NAMENDA [Concomitant]
  8. PANGESTYME [Concomitant]
  9. THIAMINE HCL [Concomitant]
  10. FOLIC ACID [Concomitant]
  11. TRAZODONE HCL [Concomitant]

REACTIONS (3)
  - CONDITION AGGRAVATED [None]
  - CONVULSION [None]
  - PRODUCT SUBSTITUTION ISSUE [None]
